FAERS Safety Report 10221205 (Version 1)
Quarter: 2014Q2

REPORT INFORMATION
  Report Type: Spontaneous
  Country: US (occurrence: None)
  Receive Date: 20140604
  Receipt Date: 20140604
  Transmission Date: 20141212
  Serious: Yes (Hospitalization, Other)
  Sender: FDA-Public Use
  Company Number: 2014050097

PATIENT
  Age: 33 Year
  Sex: Female

DRUGS (2)
  1. ZOLPIDEM (ZOLPIDEM) [Suspect]
     Indication: INSOMNIA
  2. CLONAZEPAM [Concomitant]

REACTIONS (13)
  - Paranoia [None]
  - Disorientation [None]
  - Suicidal ideation [None]
  - Depressed mood [None]
  - Hallucination, auditory [None]
  - Insomnia [None]
  - Tremor [None]
  - Tremor [None]
  - Eye movement disorder [None]
  - Visual impairment [None]
  - Extra dose administered [None]
  - Schizoaffective disorder [None]
  - Condition aggravated [None]
